FAERS Safety Report 18662062 (Version 1)
Quarter: 2020Q4

REPORT INFORMATION
  Report Type: Spontaneous
  Country: US (occurrence: US)
  Receive Date: 20201224
  Receipt Date: 20201224
  Transmission Date: 20210114
  Serious: Yes (Other)
  Sender: FDA-Public Use
  Company Number: US-TAKEDA-2020TUS057495

PATIENT
  Sex: Male
  Weight: 74.83 kg

DRUGS (11)
  1. DRONABINOL. [Concomitant]
     Active Substance: DRONABINOL
  2. ACETAMINOPHEN + COD. PHOSP. [Concomitant]
     Active Substance: ACETAMINOPHEN\CODEINE PHOSPHATE
  3. NALTREXONE [Concomitant]
     Active Substance: NALTREXONE
  4. EPINEPHRINE. [Concomitant]
     Active Substance: EPINEPHRINE
  5. BUTALBITAL AND ACETAMINOPHEN [Concomitant]
     Active Substance: ACETAMINOPHEN\BUTALBITAL
  6. HEPARIN [Concomitant]
     Active Substance: HEPARIN SODIUM
  7. NORMAL SALINE [Concomitant]
     Active Substance: SODIUM CHLORIDE
  8. SOLU-MEDROL [Concomitant]
     Active Substance: METHYLPREDNISOLONE SODIUM SUCCINATE
  9. DIPHENHYDRAMINE. [Concomitant]
     Active Substance: DIPHENHYDRAMINE
  10. GAMMAGARD LIQUID [Suspect]
     Active Substance: HUMAN IMMUNOGLOBULIN G
     Indication: POLYNEUROPATHY
     Dosage: 2000 MILLIGRAM
     Route: 042
     Dates: start: 20201201
  11. FOLIC ACID. [Concomitant]
     Active Substance: FOLIC ACID

REACTIONS (3)
  - Neuropathy peripheral [Unknown]
  - Headache [Unknown]
  - Paraesthesia [Unknown]
